FAERS Safety Report 8084716-4 (Version None)
Quarter: 2012Q1

REPORT INFORMATION
  Report Type: 
  Country: None (occurrence: None)
  Receive Date: 20120128
  Receipt Date: 20110311
  Transmission Date: 20120608
  Serious: No
  Sender: FDA-Public Use
  Company Number: US-ABBOTT-11P-163-0711002-00

PATIENT
  Age: 61 Year
  Sex: Female

DRUGS (12)
  1. PREVACID [Concomitant]
     Indication: GASTROOESOPHAGEAL REFLUX DISEASE
  2. SINGULAIR [Concomitant]
     Indication: HYPERSENSITIVITY
  3. VIVELLE [Concomitant]
     Indication: PRODUCT USED FOR UNKNOWN INDICATION
     Dosage: HORMONE PATCH
  4. PREDNISONE TAB [Concomitant]
     Indication: PRODUCT USED FOR UNKNOWN INDICATION
  5. BROMPHENIRAMINE MALEATE + PSEUDOEPHEDRINE HCL [Concomitant]
     Indication: HYPERSENSITIVITY
     Dosage: DAILY
  6. MOBIC [Concomitant]
     Indication: INFLAMMATION
  7. SYNTHROID [Concomitant]
     Indication: GOITRE
  8. HUMIRA [Suspect]
     Indication: RHEUMATOID ARTHRITIS
     Dosage: INITIAL DOSE
     Dates: start: 20110311
  9. SINGULAIR [Concomitant]
     Indication: ASTHMA
  10. NASAL SPRAY [Concomitant]
     Indication: PRODUCT USED FOR UNKNOWN INDICATION
  11. NASONEX [Concomitant]
     Indication: HYPERSENSITIVITY
  12. CORGARD [Concomitant]
     Indication: TACHYARRHYTHMIA

REACTIONS (2)
  - VISION BLURRED [None]
  - HEADACHE [None]
